FAERS Safety Report 7920320-3 (Version None)
Quarter: 2011Q4

REPORT INFORMATION
  Report Type: 
  Country: None (occurrence: None)
  Receive Date: 20111117
  Receipt Date: 20111107
  Transmission Date: 20120403
  Serious: Yes (Other)
  Sender: FDA-Public Use
  Company Number: US-BAYER-2011-050507

PATIENT
  Age: 24 Year
  Sex: Female
  Weight: 75 kg

DRUGS (8)
  1. YAZ [Suspect]
     Indication: CONTRACEPTION
     Dosage: UNK
     Dates: start: 20080101, end: 20090101
  2. ADDERALL 5 [Concomitant]
     Dosage: 10 MG, UNK
     Route: 048
     Dates: start: 19970101
  3. LEXAPRO [Concomitant]
     Dosage: 20 MG, UNK
     Route: 048
     Dates: start: 20000101
  4. PROTONIX [Concomitant]
     Dosage: 40 MG, UNK
     Route: 048
     Dates: start: 20080101
  5. ZANTAC [Concomitant]
     Dosage: 75 MG, UNK
     Route: 048
  6. DIFLUCAN [Concomitant]
     Dosage: 150 MG, UNK
     Route: 048
  7. CELEBREX [Concomitant]
     Dosage: 200 MG, UNK
     Route: 048
  8. NAPROXEN [Concomitant]
     Dosage: 375 MG, UNK
     Route: 048
     Dates: start: 20000101

REACTIONS (3)
  - GALLBLADDER OPERATION [None]
  - PAIN [None]
  - CHOLECYSTITIS CHRONIC [None]
